FAERS Safety Report 7874380-9 (Version None)
Quarter: 2011Q4

REPORT INFORMATION
  Report Type: 
  Country: None (occurrence: None)
  Receive Date: 20111018
  Receipt Date: 20110531
  Transmission Date: 20120403
  Serious: Yes (Other)
  Sender: FDA-Public Use
  Company Number: 2011VX001555

PATIENT
  Age: 72 Year
  Sex: Male
  Weight: 86.1834 kg

DRUGS (3)
  1. LIPITOR [Concomitant]
  2. XALATAN [Suspect]
     Indication: GLAUCOMA
     Dosage: 1 GTT;QD;OPH
     Route: 047
  3. TIMOLOL MALEATE [Suspect]
     Indication: GLAUCOMA
     Dosage: 1 GTT;QD;OPH
     Route: 047

REACTIONS (1)
  - EYE IRRITATION [None]
